FAERS Safety Report 9547085 (Version 1)
Quarter: 2013Q3

REPORT INFORMATION
  Report Type: Report from Study
  Country: BR (occurrence: BR)
  Receive Date: 20130924
  Receipt Date: 20130924
  Transmission Date: 20140515
  Serious: Yes (Other)
  Sender: FDA-Public Use
  Company Number: PHHY2013BR105149

PATIENT
  Age: 72 Year
  Sex: Male

DRUGS (9)
  1. FORASEQ [Suspect]
     Dosage: UNK
     Dates: end: 200912
  2. SALMETEROL/FLUTICASON [Suspect]
     Dosage: UNK
  3. SALMETEROL/FLUTICASON [Suspect]
     Dosage: UNK, BID
     Dates: start: 201105
  4. MAREVAN [Concomitant]
     Dosage: UNK
  5. SUSTRATE [Concomitant]
     Dosage: UNK
  6. LASIX [Concomitant]
     Dosage: UNK
  7. OMEPRAZOLE [Concomitant]
     Dosage: UNK
  8. DIVELOL [Concomitant]
     Dosage: UNK
  9. LOSARTAN [Concomitant]
     Dosage: UNK

REACTIONS (4)
  - Forced expiratory volume decreased [Recovering/Resolving]
  - Dyspnoea [Recovering/Resolving]
  - Cough [Recovering/Resolving]
  - Tachycardia [Unknown]
